FAERS Safety Report 21242292 (Version 2)
Quarter: 2022Q3

REPORT INFORMATION
  Report Type: Spontaneous
  Country: US (occurrence: None)
  Receive Date: 20220823
  Receipt Date: 20220923
  Transmission Date: 20221027
  Serious: No
  Sender: FDA-Public Use
  Company Number: 2022A278890

PATIENT
  Sex: Female
  Weight: 62.1 kg

DRUGS (3)
  1. BUDESONIDE\FORMOTEROL\GLYCOPYRRONIUM [Suspect]
     Active Substance: BUDESONIDE\FORMOTEROL\GLYCOPYRRONIUM
     Indication: Asthma
     Dosage: 160/9/4.8MCG, 2 INHALATIONS TWICE DAILY
     Route: 055
  2. ARAVA [Concomitant]
     Active Substance: LEFLUNOMIDE
  3. METHOTREXATE [Concomitant]
     Active Substance: METHOTREXATE
     Dosage: 5 (2.5MG) , ONCE A WEEK
     Route: 048

REACTIONS (6)
  - Asthma [Not Recovered/Not Resolved]
  - Device delivery system issue [Unknown]
  - Product distribution issue [Unknown]
  - Drug dose omission by device [Unknown]
  - Device use issue [Unknown]
  - Device malfunction [Unknown]
